FAERS Safety Report 8182140-7 (Version None)
Quarter: 2012Q1

REPORT INFORMATION
  Report Type: 
  Country: None (occurrence: None)
  Receive Date: 20120302
  Receipt Date: 20120227
  Transmission Date: 20120608
  Serious: Yes (Other)
  Sender: FDA-Public Use
  Company Number: US-ASTRAZENECA-2010SE29181

PATIENT
  Age: 63 Year
  Sex: Female
  Weight: 74.8 kg

DRUGS (8)
  1. LISINOPRIL [Concomitant]
  2. NEXIUM [Suspect]
     Route: 048
  3. DEXILANT [Concomitant]
  4. SEROQUEL XR [Suspect]
     Indication: BIPOLAR I DISORDER
     Route: 048
     Dates: start: 20080101
  5. CLONAZEPAM [Concomitant]
  6. LAMICTAL [Concomitant]
  7. CARDIZEM CD [Concomitant]
  8. SIMVASTATIN [Concomitant]

REACTIONS (17)
  - DYSSTASIA [None]
  - SUICIDAL IDEATION [None]
  - GASTROOESOPHAGEAL REFLUX DISEASE [None]
  - PAIN IN EXTREMITY [None]
  - ARRHYTHMIA [None]
  - DYSKINESIA [None]
  - CRYING [None]
  - HIATUS HERNIA [None]
  - DIZZINESS [None]
  - DRUG DOSE OMISSION [None]
  - ANKLE FRACTURE [None]
  - ANXIETY [None]
  - DIVERTICULITIS [None]
  - ABDOMINAL PAIN UPPER [None]
  - DRUG WITHDRAWAL SYNDROME [None]
  - FEELING ABNORMAL [None]
  - COLITIS ULCERATIVE [None]
